FAERS Safety Report 19793702 (Version 1)
Quarter: 2021Q3

REPORT INFORMATION
  Report Type: Spontaneous
  Country: CA (occurrence: CA)
  Receive Date: 20210907
  Receipt Date: 20210907
  Transmission Date: 20211014
  Serious: Yes (Life-Threatening, Other)
  Sender: FDA-Public Use
  Company Number: CA-ORION CORPORATION ORION PHARMA-21_00015730

PATIENT
  Age: 23 Year
  Sex: Female
  Weight: 36 kg

DRUGS (2)
  1. METHOTREXATE (TRADE NAME UNKNOWN) [Suspect]
     Active Substance: METHOTREXATE
     Indication: PRODUCT USED FOR UNKNOWN INDICATION
     Route: 065
  2. RUXIENCE (RITUXIMAB) [Concomitant]
     Indication: GRANULOMATOSIS WITH POLYANGIITIS
     Dosage: 1000 MG ON DAY 1 AND DAY 15, NOT STARTED YET
     Route: 042

REACTIONS (9)
  - Sinus disorder [Unknown]
  - Lung disorder [Unknown]
  - Renal failure [Unknown]
  - Antineutrophil cytoplasmic antibody increased [Unknown]
  - Eye disorder [Unknown]
  - Glomerulonephritis rapidly progressive [Unknown]
  - Haemorrhage [Unknown]
  - Anti-neutrophil cytoplasmic antibody positive vasculitis [Unknown]
  - Weight abnormal [Unknown]

NARRATIVE: CASE EVENT DATE: 20210827
